FAERS Safety Report 8792400 (Version 1)
Quarter: 2012Q4

REPORT INFORMATION
  Report Type: 
  Country: US (occurrence: US)
  Receive Date: 20120918
  Receipt Date: 20120918
  Transmission Date: 20130627
  Serious: No
  Sender: FDA-Public Use
  Company Number: US-PFIZER INC-2012227606

PATIENT
  Age: 32 Year
  Sex: Male
  Weight: 68.03 kg

DRUGS (6)
  1. GENOTROPIN [Suspect]
     Indication: HYPOPITUITARISM
     Dosage: UNK
  2. SYNTHROID [Concomitant]
     Indication: THYROID DISORDER
     Dosage: UNK
  3. LAMICTAL [Concomitant]
     Indication: CONVULSION
     Dosage: UNK
  4. SERTRALINE [Concomitant]
     Indication: ANXIETY
     Dosage: UNK
  5. LOVASTATIN [Concomitant]
     Indication: BLOOD CHOLESTEROL INCREASED
     Dosage: UNK
  6. VIMPAT [Concomitant]
     Dosage: UNK

REACTIONS (2)
  - Injection site pain [Not Recovered/Not Resolved]
  - Pain in extremity [Not Recovered/Not Resolved]
